FAERS Safety Report 15370796 (Version 1)
Quarter: 2018Q3

REPORT INFORMATION
  Report Type: Spontaneous
  Country: TR (occurrence: TR)
  Receive Date: 20180911
  Receipt Date: 20180911
  Transmission Date: 20181010
  Serious: Yes (Other)
  Sender: FDA-Public Use
  Company Number: TR-TEVA-2018-TR-952182

PATIENT
  Age: 17 Year
  Sex: Female

DRUGS (1)
  1. ARIPIPRAZOLE. [Suspect]
     Active Substance: ARIPIPRAZOLE
     Indication: MAJOR DEPRESSION
     Dosage: 5 MILLIGRAM DAILY; LOW?DOSE
     Route: 065

REACTIONS (3)
  - Drug interaction [Recovered/Resolved]
  - Amenorrhoea [Recovered/Resolved]
  - Hyperprolactinaemia [Recovered/Resolved]
